FAERS Safety Report 7704947-X (Version None)
Quarter: 2011Q3

REPORT INFORMATION
  Report Type: 
  Country: None (occurrence: None)
  Receive Date: 20110823
  Receipt Date: 20110816
  Transmission Date: 20111222
  Serious: No
  Sender: FDA-Public Use
  Company Number: US-PFIZER INC-2011189314

PATIENT
  Sex: Female

DRUGS (2)
  1. TOVIAZ [Suspect]
     Dosage: UNK
  2. VESICARE [Suspect]
     Dosage: UNK

REACTIONS (4)
  - BLADDER DISORDER [None]
  - DRUG INEFFECTIVE [None]
  - GASTRIC DISORDER [None]
  - IRRITABLE BOWEL SYNDROME [None]
